FAERS Safety Report 23738600 (Version 1)
Quarter: 2024Q2

REPORT INFORMATION
  Report Type: Report from Study
  Country: US (occurrence: US)
  Receive Date: 20240412
  Receipt Date: 20240412
  Transmission Date: 20240716
  Serious: Yes (Other)
  Sender: FDA-Public Use
  Company Number: US-ABBVIE-5711434

PATIENT
  Age: 53 Year
  Sex: Female

DRUGS (1)
  1. RINVOQ [Suspect]
     Active Substance: UPADACITINIB
     Indication: Psoriatic arthropathy
     Route: 048
     Dates: start: 20230113

REACTIONS (4)
  - Sinus disorder [Unknown]
  - Arthralgia [Recovering/Resolving]
  - COVID-19 [Recovered/Resolved]
  - Onycholysis [Unknown]

NARRATIVE: CASE EVENT DATE: 20230113
